FAERS Safety Report 6195468-7 (Version None)
Quarter: 2009Q2

REPORT INFORMATION
  Report Type: 
  Country: None (occurrence: None)
  Receive Date: 20090519
  Receipt Date: 20090514
  Transmission Date: 20091009
  Serious: Yes (Death)
  Sender: FDA-Public Use
  Company Number: US-CELGENEUS-163-21880-09051067

PATIENT
  Sex: Male

DRUGS (4)
  1. REVLIMID [Suspect]
     Route: 048
     Dates: start: 20080501, end: 20081201
  2. REVLIMID [Suspect]
     Route: 048
     Dates: start: 20070401, end: 20080201
  3. REVLIMID [Suspect]
     Route: 048
     Dates: start: 20080301, end: 20080301
  4. REVLIMID [Suspect]
     Route: 048
     Dates: start: 20080401, end: 20080401

REACTIONS (7)
  - BLOOD COUNT ABNORMAL [None]
  - DEATH [None]
  - NEUTROPENIA [None]
  - PLATELET COUNT DECREASED [None]
  - PRURITUS [None]
  - RASH ERYTHEMATOUS [None]
  - WHITE BLOOD CELL COUNT DECREASED [None]
